FAERS Safety Report 11321372 (Version 1)
Quarter: 2015Q3

REPORT INFORMATION
  Report Type: Spontaneous
  Country: US (occurrence: US)
  Receive Date: 20150729
  Receipt Date: 20150729
  Transmission Date: 20151125
  Serious: No
  Sender: FDA-Public Use
  Company Number: US-ENDO PHARMACEUTICALS INC.-201407080

PATIENT
  Age: 59 Year
  Sex: Male
  Weight: 82.63 kg

DRUGS (4)
  1. TESTOPEL [Suspect]
     Active Substance: TESTOSTERONE
     Indication: BLOOD TESTOSTERONE DECREASED
     Dosage: 8 TO 9 PELLETS
     Route: 058
     Dates: start: 201404
  2. CIALIS [Concomitant]
     Active Substance: TADALAFIL
  3. MULTIVITAMIN [Concomitant]
     Active Substance: VITAMINS
  4. GLUCOSAMINE [Concomitant]
     Active Substance: GLUCOSAMINE

REACTIONS (3)
  - Ageusia [Recovering/Resolving]
  - Anosmia [Recovering/Resolving]
  - Overdose [Unknown]

NARRATIVE: CASE EVENT DATE: 2014
